FAERS Safety Report 6633882-3 (Version None)
Quarter: 2010Q1

REPORT INFORMATION
  Report Type: 
  Country: None (occurrence: None)
  Receive Date: 20100315
  Receipt Date: 20100302
  Transmission Date: 20100710
  Serious: Yes (Other)
  Sender: FDA-Public Use
  Company Number: US-JNJFOC-20100301133

PATIENT
  Age: 21 Year
  Sex: Female
  Weight: 63.5 kg

DRUGS (4)
  1. EXTRA STRENGTH TYLENOL [Suspect]
     Route: 048
  2. EXTRA STRENGTH TYLENOL [Suspect]
     Indication: HEADACHE
     Route: 048
  3. MOTRIN IB [Suspect]
     Route: 048
  4. MOTRIN IB [Suspect]
     Indication: HEADACHE
     Route: 048

REACTIONS (6)
  - APHONIA [None]
  - DRUG INEFFECTIVE [None]
  - HYPERSENSITIVITY [None]
  - PRODUCT QUALITY ISSUE [None]
  - RETCHING [None]
  - THROAT IRRITATION [None]
